FAERS Safety Report 7952191-3 (Version None)
Quarter: 2011Q4

REPORT INFORMATION
  Report Type: 
  Country: None (occurrence: None)
  Receive Date: 20111201
  Receipt Date: 20111125
  Transmission Date: 20120403
  Serious: Yes (Other)
  Sender: FDA-Public Use
  Company Number: PHHO2011DE019842

PATIENT
  Sex: Female
  Weight: 54 kg

DRUGS (4)
  1. LEVOTHYROXINE SODIUM [Concomitant]
     Indication: HYPOTHYROIDISM
     Dosage: 100 UG, UNK
     Dates: start: 20070101
  2. AFINITOR [Suspect]
     Indication: NEUROENDOCRINE TUMOUR
     Dosage: 10 MG, UNK
     Dates: start: 20110701, end: 20110803
  3. ACTRAPID HUMAN [Suspect]
     Indication: DIABETES MELLITUS
     Dosage: DAILY
     Dates: start: 20110301
  4. DURAGESIC-100 [Concomitant]
     Indication: PAIN
     Dosage: 3.75 UG, UNK
     Dates: start: 20110301

REACTIONS (1)
  - CHOLESTASIS [None]
